FAERS Safety Report 9890912 (Version 1)
Quarter: 2014Q1

REPORT INFORMATION
  Report Type: Spontaneous
  Country: US (occurrence: None)
  Receive Date: 20140210
  Receipt Date: 20140210
  Transmission Date: 20141002
  Serious: No
  Sender: FDA-Public Use
  Company Number: None

PATIENT
  Age: 54 Year
  Sex: Female
  Weight: 61.69 kg

DRUGS (8)
  1. OMEPRAZOLE [Suspect]
     Dosage: 1 CAPSULE  DAILY MOUTH?DURATION: YEARS
     Route: 048
     Dates: end: 20140113
  2. PANTOPRAZOLE [Concomitant]
  3. LOSARTAM [Concomitant]
  4. SERTRALINE [Concomitant]
  5. PRAVASTATIN [Concomitant]
  6. FENOFIBRATE [Concomitant]
  7. HYOSCYAMINE [Concomitant]
  8. CARAFATE [Concomitant]

REACTIONS (4)
  - Dyspepsia [None]
  - Gastrooesophageal reflux disease [None]
  - Oesophageal ulcer [None]
  - Product quality issue [None]
